FAERS Safety Report 5834063-3 (Version None)
Quarter: 2008Q3

REPORT INFORMATION
  Report Type: 
  Country: None (occurrence: None)
  Receive Date: 20080801
  Receipt Date: 20080801
  Transmission Date: 20090109
  Serious: Yes (Hospitalization)
  Sender: FDA-Public Use
  Company Number: None

PATIENT
  Age: 68 Year
  Sex: Male

DRUGS (4)
  1. SPIRONOLACTONE [Suspect]
     Indication: CIRRHOSIS ALCOHOLIC
     Dosage: 50 MG EVERYDAY PO
     Route: 048
     Dates: start: 20080516, end: 20080722
  2. SPIRONOLACTONE [Suspect]
     Indication: HYPERTENSION
     Dosage: 50 MG EVERYDAY PO
     Route: 048
     Dates: start: 20080516, end: 20080722
  3. LISINOPRIL [Suspect]
     Indication: CIRRHOSIS ALCOHOLIC
     Dosage: 40 MG EVERYDAY PO
     Route: 048
     Dates: start: 20080211, end: 20080722
  4. LISINOPRIL [Suspect]
     Indication: HYPERTENSION
     Dosage: 40 MG EVERYDAY PO
     Route: 048
     Dates: start: 20080211, end: 20080722

REACTIONS (1)
  - HYPERKALAEMIA [None]
